FAERS Safety Report 15037673 (Version 3)
Quarter: 2018Q3

REPORT INFORMATION
  Report Type: Spontaneous
  Country: US (occurrence: US)
  Receive Date: 20180620
  Receipt Date: 20180802
  Transmission Date: 20181010
  Serious: Yes (Hospitalization, Other)
  Sender: FDA-Public Use
  Company Number: US-ASTRAZENECA-2014SE20948

PATIENT
  Age: 793 Month
  Sex: Female
  Weight: 88.5 kg

DRUGS (3)
  1. BYDUREON [Suspect]
     Active Substance: EXENATIDE
     Indication: TYPE 2 DIABETES MELLITUS
     Route: 058
     Dates: start: 20180520
  2. BYDUREON [Suspect]
     Active Substance: EXENATIDE
     Indication: TYPE 2 DIABETES MELLITUS
     Route: 058
     Dates: start: 201305
  3. BYDUREON [Suspect]
     Active Substance: EXENATIDE
     Indication: TYPE 2 DIABETES MELLITUS
     Route: 058
     Dates: start: 201309

REACTIONS (18)
  - Peritonitis [Unknown]
  - Vascular occlusion [Unknown]
  - Drug dose omission [Unknown]
  - Fall [Unknown]
  - Panic attack [Unknown]
  - Gallbladder perforation [Unknown]
  - Product quality issue [Unknown]
  - Weight decreased [Unknown]
  - Nausea [Unknown]
  - Chest pain [Unknown]
  - Decreased appetite [Unknown]
  - Pulmonary embolism [Unknown]
  - Pain [Unknown]
  - Visual impairment [Unknown]
  - Myocardial infarction [Unknown]
  - Thrombosis [Unknown]
  - Influenza [Unknown]
  - Cold sweat [Unknown]

NARRATIVE: CASE EVENT DATE: 201305
